FAERS Safety Report 12827894 (Version 1)
Quarter: 2016Q4

REPORT INFORMATION
  Report Type: Spontaneous
  Country: US (occurrence: US)
  Receive Date: 20161006
  Receipt Date: 20161006
  Transmission Date: 20170207
  Serious: No
  Sender: FDA-Public Use
  Company Number: US-TWI PHARMACEUTICAL, INC-2016SCTW000010

PATIENT

DRUGS (1)
  1. NIFEDIPINE. [Suspect]
     Active Substance: NIFEDIPINE
     Indication: PRODUCT USED FOR UNKNOWN INDICATION
     Dosage: UNK UNK, UNKNOWN
     Route: 065

REACTIONS (11)
  - Myalgia [Unknown]
  - Bone pain [Unknown]
  - Constipation [Unknown]
  - Fatigue [Unknown]
  - Feeling abnormal [Unknown]
  - Dry mouth [Unknown]
  - Headache [Unknown]
  - Abdominal distension [Unknown]
  - Irritability [Unknown]
  - Abdominal pain upper [Unknown]
  - Dizziness [Unknown]
